FAERS Safety Report 8574422-1 (Version None)
Quarter: 2012Q3

REPORT INFORMATION
  Report Type: 
  Country: None (occurrence: None)
  Receive Date: 20120806
  Receipt Date: 20120801
  Transmission Date: 20120928
  Serious: Yes (Disabling)
  Sender: FDA-Public Use
  Company Number: PHHY2012GB066311

PATIENT
  Age: 64 Year
  Sex: Male
  Weight: 80 kg

DRUGS (6)
  1. SLOZEM [Concomitant]
  2. AMOXICILLIN AND CLAVULANATE POTASSIUM [Suspect]
     Indication: DIVERTICULITIS
     Route: 048
     Dates: start: 20120715, end: 20120721
  3. AMOXICILLIN [Concomitant]
  4. ATENOLOL [Concomitant]
  5. SIMVASTATIN [Concomitant]
  6. ASPIRIN [Concomitant]

REACTIONS (6)
  - MALAISE [None]
  - URINE ODOUR ABNORMAL [None]
  - MOTOR DYSFUNCTION [None]
  - DIZZINESS [None]
  - FATIGUE [None]
  - DYSGEUSIA [None]
